FAERS Safety Report 24356811 (Version 1)
Quarter: 2024Q3

REPORT INFORMATION
  Report Type: Spontaneous
  Country: CO (occurrence: CO)
  Receive Date: 20240924
  Receipt Date: 20240924
  Transmission Date: 20241017
  Serious: Yes (Life-Threatening)
  Sender: AIR PRODUCTS
  Company Number: CO-Air Products and Chemicals-2161951

PATIENT
  Sex: Female

DRUGS (1)
  1. OXYGEN [Suspect]
     Active Substance: OXYGEN

REACTIONS (1)
  - Cyanosis [Recovered/Resolved]
